FAERS Safety Report 6969880-X (Version None)
Quarter: 2010Q3

REPORT INFORMATION
  Report Type: 
  Country: None (occurrence: None)
  Receive Date: 20100908
  Receipt Date: 20100825
  Transmission Date: 20110219
  Serious: Yes (Other)
  Sender: FDA-Public Use
  Company Number: GB-RANBAXY-2010RR-37894

PATIENT
  Age: 87 Year
  Sex: Female

DRUGS (5)
  1. RANITIDINE [Suspect]
     Indication: GASTROOESOPHAGEAL REFLUX DISEASE
     Dosage: 150 MG, BID
     Route: 048
     Dates: start: 20100608
  2. DIGOXIN [Concomitant]
     Indication: ATRIAL FIBRILLATION
     Dosage: 0.625 MG, UNK
     Route: 048
  3. FOLIC ACID [Concomitant]
  4. FUROSEMIDE [Concomitant]
     Indication: FLUID RETENTION
     Dosage: 20 MG, UNK
     Route: 048
  5. LISINOPRIL [Concomitant]
     Dosage: 5 MG, UNK
     Route: 048
     Dates: start: 19920101

REACTIONS (1)
  - DRUG INEFFECTIVE [None]
